FAERS Safety Report 16313090 (Version 4)
Quarter: 2025Q1

REPORT INFORMATION
  Report Type: Spontaneous
  Country: US (occurrence: US)
  Receive Date: 20190515
  Receipt Date: 20250319
  Transmission Date: 20250409
  Serious: Yes (Hospitalization, Other)
  Sender: GLENMARK
  Company Number: US-GLENMARK PHARMACEUTICALS-2019GMK041252

PATIENT
  Age: 58 Year
  Sex: Male

DRUGS (9)
  1. GABAPENTIN [Interacting]
     Active Substance: GABAPENTIN
     Indication: Pain
     Dosage: 1000 MG, TID (EVERY 8 HOURS AS NEEDED)
     Route: 048
  2. PERCOCET [Interacting]
     Active Substance: ACETAMINOPHEN\OXYCODONE HYDROCHLORIDE
     Indication: Pain
     Dosage: 1 DF, QID (FOUR TIMES A DAY AS NEEDED)
     Route: 048
  3. MS CONTIN [Interacting]
     Active Substance: MORPHINE SULFATE
     Indication: Pain
     Dosage: 60 MG, BID (EVERY 12 HOURS AS NEEDED)
     Route: 048
  4. INSULIN NOS [Concomitant]
     Active Substance: INSULIN NOS
     Indication: Type 2 diabetes mellitus
     Route: 065
  5. LEVOTHYROXINE [Concomitant]
     Active Substance: LEVOTHYROXINE
     Indication: Hypothyroidism
     Dosage: 100 ?G, OD
     Route: 048
  6. OMEPRAZOLE [Concomitant]
     Active Substance: OMEPRAZOLE
     Indication: Gastrooesophageal reflux disease
     Dosage: 40 MG, OD (IN MORNING)
     Route: 048
  7. VALSARTAN [Concomitant]
     Active Substance: VALSARTAN
     Indication: Hypertension
     Dosage: 160 MG, OD
     Route: 048
  8. METFORMIN [Concomitant]
     Active Substance: METFORMIN HYDROCHLORIDE
     Indication: Type 2 diabetes mellitus
     Route: 065
  9. NIACIN [Concomitant]
     Active Substance: NIACIN
     Indication: Hyperlipidaemia
     Route: 065

REACTIONS (10)
  - Encephalopathy [Recovered/Resolved]
  - Acute respiratory failure [Recovered/Resolved]
  - Toxicity to various agents [Recovered/Resolved]
  - Respiratory acidosis [Recovered/Resolved]
  - Acute kidney injury [Recovered/Resolved]
  - Medication error [Unknown]
  - Drug interaction [Recovered/Resolved]
  - Agitation [Recovered/Resolved]
  - Overdose [Unknown]
  - Withdrawal syndrome [Recovered/Resolved]
